FAERS Safety Report 19570462 (Version 1)
Quarter: 2021Q3

REPORT INFORMATION
  Report Type: Other
  Country: QA (occurrence: QA)
  Receive Date: 20210715
  Receipt Date: 20210715
  Transmission Date: 20211014
  Serious: Yes (Other)
  Sender: FDA-Public Use
  Company Number: QA-B.BRAUN MEDICAL INC.-2113890

PATIENT
  Age: 26 Year
  Sex: Female

DRUGS (5)
  1. BUPIVACAINE HYDROCHLORIDE WITH DEXTROSE [Suspect]
     Active Substance: BUPIVACAINE HYDROCHLORIDE
     Indication: CAESAREAN SECTION
     Route: 008
  2. H2 BLOCKER [Concomitant]
  3. LABETALOL [Concomitant]
     Active Substance: LABETALOL\LABETALOL HYDROCHLORIDE
  4. METOCLOPRAMIDE. [Concomitant]
     Active Substance: METOCLOPRAMIDE
  5. SODIUM CITRATE. [Concomitant]
     Active Substance: SODIUM CITRATE

REACTIONS (3)
  - Pneumomediastinum [None]
  - Pneumorrhachis [None]
  - Pneumothorax [None]
